FAERS Safety Report 12160080 (Version 3)
Quarter: 2016Q2

REPORT INFORMATION
  Report Type: Report from Study
  Country: US (occurrence: US)
  Receive Date: 20160308
  Receipt Date: 20160623
  Transmission Date: 20160815
  Serious: Yes (Hospitalization)
  Sender: FDA-Public Use
  Company Number: US-EISAI MEDICAL RESEARCH-EC-2015-002819

PATIENT
  Age: 47 Year
  Sex: Male
  Weight: 110.8 kg

DRUGS (37)
  1. DIPHENHYDRAMINE. [Concomitant]
     Active Substance: DIPHENHYDRAMINE
     Route: 048
     Dates: start: 20120606
  2. GEMFIBROZIL. [Concomitant]
     Active Substance: GEMFIBROZIL
     Route: 048
     Dates: start: 20140405
  3. ACETAMINOPHEN. [Concomitant]
     Active Substance: ACETAMINOPHEN
     Route: 048
     Dates: start: 20060927
  4. FLUTICASONE [Concomitant]
     Active Substance: FLUTICASONE\FLUTICASONE PROPIONATE
     Route: 050
     Dates: start: 20140108
  5. GABAPENTIN. [Concomitant]
     Active Substance: GABAPENTIN
     Route: 048
     Dates: start: 20140203
  6. TIZANIDINE. [Concomitant]
     Active Substance: TIZANIDINE
  7. FOLIC ACID. [Concomitant]
     Active Substance: FOLIC ACID
  8. PROPANOLOL [Concomitant]
     Active Substance: PROPRANOLOL HYDROCHLORIDE
  9. LORCASERIN [Suspect]
     Active Substance: LORCASERIN HYDROCHLORIDE
     Route: 048
     Dates: start: 20150930, end: 20151116
  10. LORCASERIN [Suspect]
     Active Substance: LORCASERIN HYDROCHLORIDE
     Route: 048
     Dates: start: 20160304, end: 20160609
  11. CLOPIDOGREL [Concomitant]
     Active Substance: CLOPIDOGREL BISULFATE
     Route: 048
     Dates: start: 20001201
  12. LORATIDINE [Concomitant]
     Active Substance: LORATADINE
  13. PROAIR INHALER [Concomitant]
     Route: 050
     Dates: start: 20140520
  14. METHOCARBAMOL. [Concomitant]
     Active Substance: METHOCARBAMOL
     Route: 048
     Dates: start: 20121212
  15. TOPIRAMATE. [Concomitant]
     Active Substance: TOPIRAMATE
  16. LORCASERIN [Suspect]
     Active Substance: LORCASERIN HYDROCHLORIDE
     Indication: WEIGHT CONTROL
     Route: 048
     Dates: start: 20141229, end: 20150319
  17. PROCHLORPERAZINE. [Concomitant]
     Active Substance: PROCHLORPERAZINE
     Route: 048
     Dates: start: 20140912
  18. WARFARIN [Concomitant]
     Active Substance: WARFARIN
     Route: 048
     Dates: start: 200401
  19. GADPBEMATE DIMEGLUMINE [Concomitant]
  20. MECLIZINE [Concomitant]
     Active Substance: MECLIZINE HYDROCHLORIDE
  21. LEVOTHYROXINE. [Concomitant]
     Active Substance: LEVOTHYROXINE
     Route: 048
     Dates: start: 20110815
  22. RANITIDINE. [Concomitant]
     Active Substance: RANITIDINE
     Route: 048
     Dates: start: 2010
  23. ATORVASTATIN [Concomitant]
     Active Substance: ATORVASTATIN
     Route: 048
     Dates: start: 20140626
  24. METOCLOPRAMIDE. [Concomitant]
     Active Substance: METOCLOPRAMIDE
  25. TIOTROPIUM [Concomitant]
     Active Substance: TIOTROPIUM
     Route: 050
     Dates: start: 20140604
  26. ASPIRIN. [Concomitant]
     Active Substance: ASPIRIN
     Route: 048
     Dates: start: 20130307
  27. LISINOPRIL. [Concomitant]
     Active Substance: LISINOPRIL
     Route: 048
     Dates: start: 20140910
  28. CYCLOBENZAPRINE [Concomitant]
     Active Substance: CYCLOBENZAPRINE
  29. METOCLORPRAMINE [Concomitant]
  30. ALBUTEROL. [Concomitant]
     Active Substance: ALBUTEROL
  31. LORCASERIN [Suspect]
     Active Substance: LORCASERIN HYDROCHLORIDE
     Route: 048
     Dates: start: 20151121, end: 20160225
  32. LORCASERIN [Suspect]
     Active Substance: LORCASERIN HYDROCHLORIDE
     Route: 048
     Dates: start: 20160614
  33. HYDROCODONE [Concomitant]
     Active Substance: HYDROCODONE
     Route: 048
     Dates: start: 20060927
  34. VENLAFAXINE [Concomitant]
     Active Substance: VENLAFAXINE HYDROCHLORIDE
     Route: 048
     Dates: start: 20140421
  35. NITROGLYCERIN. [Concomitant]
     Active Substance: NITROGLYCERIN
     Route: 048
     Dates: start: 20010607
  36. ASA [Concomitant]
     Active Substance: ASPIRIN
  37. ZOFRAN [Concomitant]
     Active Substance: ONDANSETRON HYDROCHLORIDE

REACTIONS (5)
  - Transient ischaemic attack [Recovering/Resolving]
  - Syncope [Recovered/Resolved]
  - Migraine [Recovered/Resolved]
  - Gastroenteritis [Recovered/Resolved]
  - Cerebrovascular accident [Recovered/Resolved]

NARRATIVE: CASE EVENT DATE: 20141229
